FAERS Safety Report 25082828 (Version 2)
Quarter: 2025Q1

REPORT INFORMATION
  Report Type: Report from Study
  Country: US (occurrence: US)
  Receive Date: 20250317
  Receipt Date: 20250324
  Transmission Date: 20250409
  Serious: Yes (Death)
  Sender: ROCHE
  Company Number: US-ROCHE-10000232766

PATIENT
  Age: 78 Year
  Sex: Female

DRUGS (4)
  1. AVASTIN [Suspect]
     Active Substance: BEVACIZUMAB
     Indication: Mesothelioma
     Dosage: INFUSE 940MG INTRAVENOUSLY EVERY 21 DAY(S)
     Route: 042
  2. AVASTIN [Suspect]
     Active Substance: BEVACIZUMAB
     Dosage: INFUSE 940MG INTRAVENOUSLY EVERY 21 DAY(S)
     Route: 042
  3. CISPLATIN [Concomitant]
     Active Substance: CISPLATIN
  4. PEMETREXED [Concomitant]
     Active Substance: PEMETREXED

REACTIONS (1)
  - Death [Fatal]
